FAERS Safety Report 14563200 (Version 1)
Quarter: 2018Q1

REPORT INFORMATION
  Report Type: Spontaneous
  Country: GB (occurrence: GB)
  Receive Date: 20180222
  Receipt Date: 20180222
  Transmission Date: 20180509
  Serious: Yes (Other)
  Sender: FDA-Public Use
  Company Number: GB-TEVA-2018-GB-859016

PATIENT
  Age: 27 Year
  Sex: Male

DRUGS (3)
  1. ERYTHROMYCIN. [Suspect]
     Active Substance: ERYTHROMYCIN
     Indication: NEUROMYOPATHY
     Dosage: UNKNOWN
     Route: 065
  2. FORSTEO 250UG/ML [Suspect]
     Active Substance: TERIPARATIDE
     Indication: PRODUCT USED FOR UNKNOWN INDICATION
     Dosage: UNKNOWN
     Route: 065
  3. ERYTHROMYCIN. [Suspect]
     Active Substance: ERYTHROMYCIN
     Indication: LOWER RESPIRATORY TRACT INFECTION

REACTIONS (4)
  - Diarrhoea [Unknown]
  - Malaise [Unknown]
  - Lower respiratory tract infection [Unknown]
  - Neuromyopathy [Unknown]

NARRATIVE: CASE EVENT DATE: 201712
